FAERS Safety Report 5418967-1 (Version None)
Quarter: 2007Q3

REPORT INFORMATION
  Report Type: 
  Country: None (occurrence: None)
  Receive Date: 20070817
  Receipt Date: 20070807
  Transmission Date: 20080115
  Serious: Yes (Hospitalization, Other)
  Sender: FDA-Public Use
  Company Number: US-PFIZER INC-2007066050

PATIENT
  Sex: Female
  Weight: 68 kg

DRUGS (9)
  1. ZYVOX [Suspect]
     Indication: ENDOCARDITIS BACTERIAL
     Route: 042
  2. LASIX [Concomitant]
  3. PROTONIX [Concomitant]
  4. ERAXIS [Concomitant]
  5. TIZANIDINE HCL [Concomitant]
  6. ASCORBIC ACID [Concomitant]
  7. VITAMIN CAP [Concomitant]
  8. HEPARIN [Concomitant]
  9. ZINC SULFATE [Concomitant]

REACTIONS (3)
  - CARDIAC OPERATION [None]
  - DRUG SCREEN POSITIVE [None]
  - HYPERTENSION [None]
